FAERS Safety Report 9550744 (Version 1)
Quarter: 2013Q3

REPORT INFORMATION
  Report Type: Spontaneous
  Country: US (occurrence: US)
  Receive Date: 20130924
  Receipt Date: 20130924
  Transmission Date: 20140515
  Serious: No
  Sender: FDA-Public Use
  Company Number: US-SANOFI-AVENTIS-2013SA047368

PATIENT
  Age: 59 Year
  Sex: Female
  Weight: 88.45 kg

DRUGS (8)
  1. AUBAGIO [Suspect]
     Indication: MULTIPLE SCLEROSIS
     Route: 048
     Dates: start: 20130404, end: 20130831
  2. ZOLPIDEM [Concomitant]
  3. TRAMADOL [Concomitant]
  4. BACLOFEN [Concomitant]
  5. VITAMIN D [Concomitant]
     Dosage: DOSE:1000 UNIT(S)
  6. VESICARE [Concomitant]
  7. MULTIVITAMINS [Concomitant]
  8. ALL OTHER THERAPEUTIC PRODUCTS [Concomitant]

REACTIONS (9)
  - Pain [Unknown]
  - Middle insomnia [Unknown]
  - Vertigo [Recovering/Resolving]
  - Gait disturbance [Unknown]
  - Hot flush [Not Recovered/Not Resolved]
  - Night sweats [Not Recovered/Not Resolved]
  - Alopecia [Not Recovered/Not Resolved]
  - Hypoaesthesia [Not Recovered/Not Resolved]
  - Paraesthesia [Not Recovered/Not Resolved]
